FAERS Safety Report 17979617 (Version 1)
Quarter: 2020Q3

REPORT INFORMATION
  Report Type: Spontaneous
  Country: SE (occurrence: SE)
  Receive Date: 20200703
  Receipt Date: 20200703
  Transmission Date: 20201103
  Serious: Yes (Other)
  Sender: FDA-Public Use
  Company Number: NVSC2020SE179789

PATIENT
  Sex: Female

DRUGS (1)
  1. GABAPENTIN 1A FARMA HARDA KAPSLAR [Suspect]
     Active Substance: GABAPENTIN
     Indication: NEURALGIA
     Dosage: UNK
     Route: 065
     Dates: end: 201805

REACTIONS (3)
  - Hypothalamo-pituitary disorder [Unknown]
  - Nervous system disorder [Unknown]
  - Urine output increased [Unknown]

NARRATIVE: CASE EVENT DATE: 201805
